FAERS Safety Report 10464955 (Version 1)
Quarter: 2014Q3

REPORT INFORMATION
  Report Type: Spontaneous
  Country: US (occurrence: US)
  Receive Date: 20140919
  Receipt Date: 20140919
  Transmission Date: 20150326
  Serious: Yes (Other)
  Sender: FDA-Public Use
  Company Number: US-GLAXOSMITHKLINE-A1088861A

PATIENT
  Age: 66 Year
  Sex: Female

DRUGS (5)
  1. LORAZEPAM. [Concomitant]
     Active Substance: LORAZEPAM
  2. FORADIL [Suspect]
     Active Substance: FORMOTEROL FUMARATE
     Indication: PRODUCT USED FOR UNKNOWN INDICATION
     Dosage: 1PUFF SINGLE DOSE
     Route: 065
     Dates: start: 20140908
  3. ADVAIR HFA [Suspect]
     Active Substance: FLUTICASONE PROPIONATE\SALMETEROL XINAFOATE
     Indication: ASTHMA
     Dosage: 1PUFF TWICE PER DAY
     Route: 055
     Dates: start: 2009
  4. ENALAPRIL [Concomitant]
     Active Substance: ENALAPRIL
  5. ALBUTEROL/IPRATROPIUM [Concomitant]
     Active Substance: ALBUTEROL\IPRATROPIUM

REACTIONS (8)
  - Therapeutic response changed [Unknown]
  - Drug hypersensitivity [Recovered/Resolved]
  - Ill-defined disorder [Recovering/Resolving]
  - Circulatory collapse [Recovered/Resolved]
  - Dyspnoea [Recovering/Resolving]
  - Drug interaction [Recovered/Resolved]
  - Chest discomfort [Recovering/Resolving]
  - Seasonal allergy [Unknown]

NARRATIVE: CASE EVENT DATE: 20140908
